FAERS Safety Report 24036782 (Version 1)
Quarter: 2024Q3

REPORT INFORMATION
  Report Type: Spontaneous
  Country: US (occurrence: US)
  Receive Date: 20240701
  Receipt Date: 20240701
  Transmission Date: 20241017
  Serious: No
  Sender: BRISTOL MYERS SQUIBB
  Company Number: US-BRISTOL-MYERS SQUIBB COMPANY-2024-103384

PATIENT
  Age: 52 Year
  Sex: Female
  Weight: 63.5 kg

DRUGS (2)
  1. POMALYST [Suspect]
     Active Substance: POMALIDOMIDE
     Indication: Plasma cell myeloma
     Route: 048
     Dates: start: 20240109
  2. PROMETHAZINE DM [Concomitant]
     Active Substance: DEXTROMETHORPHAN HYDROBROMIDE\PROMETHAZINE HYDROCHLORIDE
     Indication: Product used for unknown indication
     Dosage: 6.25-15 MG/5ML
     Route: 048

REACTIONS (6)
  - Ear infection [Recovering/Resolving]
  - Cough [Not Recovered/Not Resolved]
  - Hypoacusis [Not Recovered/Not Resolved]
  - Middle ear effusion [Not Recovered/Not Resolved]
  - Temporomandibular pain and dysfunction syndrome [Unknown]
  - Swelling [Unknown]
